FAERS Safety Report 9209269 (Version 1)
Quarter: 2013Q1

REPORT INFORMATION
  Report Type: Spontaneous
  Country: US (occurrence: None)
  Receive Date: 20120817
  Receipt Date: 20120817
  Transmission Date: 20140127
  Serious: Yes (Other)
  Sender: FDA-Public Use
  Company Number: PHEH2012US012973

PATIENT
  Age: 60 Year
  Sex: Male

DRUGS (4)
  1. ZORTRESS [Suspect]
     Dosage: 0.K UKN BID
  2. PREDNISONE (PREDNISONE) [Concomitant]
  3. AMLODIPINE (AMLODIPINE) [Concomitant]
  4. INSULIN (INSULIN) [Concomitant]

REACTIONS (1)
  - Diabetes mellitus [None]
